FAERS Safety Report 7511949-5 (Version None)
Quarter: 2011Q2

REPORT INFORMATION
  Report Type: 
  Country: None (occurrence: None)
  Receive Date: 20110519
  Receipt Date: 20110505
  Transmission Date: 20111010
  Serious: Yes (Life-Threatening, Hospitalization)
  Sender: FDA-Public Use
  Company Number: 1000020849

PATIENT
  Age: 51 Year
  Sex: Female

DRUGS (6)
  1. SALICYLIC ACID (SALICYLIC ACID)(TABLETS) [Suspect]
     Dosage: 100 MG (100 MG, 1 IN 1 D),ORAL
     Route: 048
     Dates: start: 20100301, end: 20100407
  2. PREDNISONE [Suspect]
     Dosage: 5 MG (5 MG, 1 IN 1 D),ORAL
     Route: 048
  3. CITALOPRAM HYDROBROMIDE [Suspect]
     Dosage: 6.6667 MG (20 MG, 1 IN 3 D),ORAL
     Route: 048
     Dates: start: 20070101
  4. OMEPRAZOLE (OMEPRAZOLE) (TABLETS) (OMEPRAZOLE) [Concomitant]
  5. CARDYL (ATORVASTATIN CALCIUM)(10 MILLIGRAM, TABLETS)(ATORVASTATIN CALC [Concomitant]
  6. ENOXAPARIN SODIUM [Suspect]
     Dosage: 80 MG (80 MG,1 IN 1 D),SUBCUTANEOUS
     Route: 058
     Dates: start: 20100301, end: 20110407

REACTIONS (7)
  - FEMORAL NERVE PALSY [None]
  - RETROPERITONEAL HAEMATOMA [None]
  - DRUG INTERACTION [None]
  - INTESTINAL HAEMATOMA [None]
  - GASTROENTERITIS ROTAVIRUS [None]
  - INTRA-ABDOMINAL HAEMATOMA [None]
  - HAEMODIALYSIS [None]
